FAERS Safety Report 4968203-5 (Version None)
Quarter: 2006Q2

REPORT INFORMATION
  Report Type: 
  Country: None (occurrence: None)
  Receive Date: 20060410
  Receipt Date: 20060405
  Transmission Date: 20061013
  Serious: Yes (Life-Threatening)
  Sender: FDA-Public Use
  Company Number: JP-AVENTIS-200611099JP

PATIENT
  Sex: Female

DRUGS (4)
  1. ALLEGRA [Suspect]
     Route: 048
     Dates: end: 20060402
  2. ALLEGRA [Suspect]
     Route: 048
     Dates: start: 20060403, end: 20060403
  3. LIPOVAS [Concomitant]
  4. LAMISIL [Concomitant]

REACTIONS (2)
  - ATRIOVENTRICULAR BLOCK [None]
  - DRUG INTERACTION [None]
